FAERS Safety Report 5081088-4 (Version None)
Quarter: 2006Q3

REPORT INFORMATION
  Report Type: 
  Country: None (occurrence: None)
  Receive Date: 20060810
  Receipt Date: 20060801
  Transmission Date: 20061208
  Serious: Yes (Other)
  Sender: FDA-Public Use
  Company Number: 2006-07-0194

PATIENT
  Age: 54 Year
  Sex: Male
  Weight: 105.2345 kg

DRUGS (5)
  1. PEG-INTRON [Suspect]
     Indication: HEPATITIS C
     Dosage: 150 MCG QWK SUBCUTANEOUS
     Route: 058
     Dates: start: 20060526
  2. RIBAVIRIN [Suspect]
     Indication: HEPATITIS C
     Dosage: 600 MG BID ORAL
     Route: 048
     Dates: start: 20060526
  3. KLONOPIN TABLETS 0.5 MG [Concomitant]
  4. NEXIUM [Concomitant]
  5. IBUPROFEN [Concomitant]

REACTIONS (14)
  - CONSTIPATION [None]
  - COUGH [None]
  - DEPRESSION [None]
  - DIZZINESS [None]
  - DRY SKIN [None]
  - DYSURIA [None]
  - FATIGUE [None]
  - INCREASED UPPER AIRWAY SECRETION [None]
  - INJECTION SITE PAIN [None]
  - NAUSEA [None]
  - PAROSMIA [None]
  - PROSTATITIS [None]
  - SKIN EXFOLIATION [None]
  - WEIGHT DECREASED [None]
